FAERS Safety Report 6508149-4 (Version None)
Quarter: 2009Q4

REPORT INFORMATION
  Report Type: 
  Country: None (occurrence: None)
  Receive Date: 20091221
  Receipt Date: 20091211
  Transmission Date: 20100525
  Serious: Yes (Other)
  Sender: FDA-Public Use
  Company Number: US-PFIZER INC-2009170000

PATIENT
  Sex: Female
  Weight: 71.655 kg

DRUGS (3)
  1. LIPITOR [Suspect]
     Indication: BLOOD CHOLESTEROL INCREASED
     Dosage: 5 MG, 1X/DAY
     Dates: start: 20080606
  2. ESTRADIOL AND ESTRADIOL CIPIONATE [Suspect]
     Indication: HORMONE LEVEL ABNORMAL
     Dosage: UNK
  3. PROMETHAZINE HYDROCHLORIDE [Concomitant]
     Dosage: UNK

REACTIONS (12)
  - ADNEXA UTERI PAIN [None]
  - CARDIOSPASM [None]
  - FATIGUE [None]
  - FLATULENCE [None]
  - MUSCLE SPASMS [None]
  - MUSCULAR WEAKNESS [None]
  - MYALGIA [None]
  - PAIN [None]
  - POLLAKIURIA [None]
  - URINARY INCONTINENCE [None]
  - WEIGHT DECREASED [None]
  - WEIGHT INCREASED [None]
